FAERS Safety Report 15710978 (Version 1)
Quarter: 2018Q4

REPORT INFORMATION
  Report Type: Spontaneous
  Country: US (occurrence: US)
  Receive Date: 20181211
  Receipt Date: 20181211
  Transmission Date: 20190205
  Serious: No
  Sender: FDA-Public Use
  Company Number: US-PERNIX THERAPEUTICS-US-2018PER001707

PATIENT
  Age: 50 Year
  Sex: Female

DRUGS (1)
  1. ZOHYDRO [Suspect]
     Active Substance: HYDROCODONE BITARTRATE
     Indication: PAIN
     Dosage: 10 MG, BID
     Route: 048
     Dates: start: 20160801

REACTIONS (3)
  - Product complaint [Unknown]
  - Pain [Unknown]
  - Drug ineffective [Unknown]
